FAERS Safety Report 6260666-0 (Version None)
Quarter: 2009Q3

REPORT INFORMATION
  Report Type: 
  Country: None (occurrence: None)
  Receive Date: 20090708
  Receipt Date: 20090624
  Transmission Date: 20100115
  Serious: Yes (Hospitalization)
  Sender: FDA-Public Use
  Company Number: DE-ROCHE-613756

PATIENT
  Sex: Female

DRUGS (10)
  1. PEG-INTERFERON ALFA 2A (RO 25-8310) [Suspect]
     Indication: HEPATITIS C
     Route: 058
     Dates: start: 20081023
  2. RIBAVIRIN [Suspect]
     Indication: HEPATITIS C
     Route: 048
     Dates: start: 20081023
  3. BLINDED VX-950 [Suspect]
     Indication: HEPATITIS C
     Route: 048
     Dates: start: 20081023
  4. ALLOPURINOL [Concomitant]
     Route: 048
     Dates: start: 20081001
  5. ZINC [Concomitant]
     Indication: MINERAL SUPPLEMENTATION
     Route: 048
     Dates: start: 20040101
  6. AMLODIPINE [Concomitant]
     Indication: HYPERTENSION
     Route: 048
     Dates: start: 20040101, end: 20081118
  7. CAPTOPRIL [Concomitant]
     Indication: HYPERTENSION
     Dates: start: 20040101, end: 20081118
  8. METOPROLOL TARTRATE [Concomitant]
     Indication: HYPERTENSION
     Route: 048
     Dates: start: 20040101, end: 20081118
  9. OMEPRAZOLE [Concomitant]
     Route: 048
     Dates: start: 20040101
  10. PANTOZOL [Concomitant]
     Indication: GASTRITIS PROPHYLAXIS
     Dosage: INDICATION REPORTED AS GASTRIC PROPHYLAXIS
     Dates: start: 20040101

REACTIONS (1)
  - HYPOTENSION [None]
